FAERS Safety Report 12080735 (Version 3)
Quarter: 2016Q3

REPORT INFORMATION
  Report Type: Spontaneous
  Country: SK (occurrence: SK)
  Receive Date: 20160216
  Receipt Date: 20160721
  Transmission Date: 20161109
  Serious: Yes (Other)
  Sender: FDA-Public Use
  Company Number: SK-SA-2016SA027170

PATIENT
  Age: 53 Year
  Sex: Male
  Weight: 83 kg

DRUGS (11)
  1. CIPROFLOXACIN. [Concomitant]
     Active Substance: CIPROFLOXACIN
     Dates: start: 20151213, end: 20151223
  2. TRANDOLAPRIL. [Concomitant]
     Active Substance: TRANDOLAPRIL
     Dates: start: 20150515
  3. DICYNONE [Concomitant]
     Active Substance: ETHAMSYLATE
     Dates: start: 20151213, end: 20151223
  4. PANTOPRAZOL [Concomitant]
     Active Substance: PANTOPRAZOLE SODIUM
     Dates: start: 20150515
  5. ANOPYRIN [Suspect]
     Active Substance: ASPIRIN
     Route: 065
     Dates: start: 20150515
  6. BISOPROLOL FUMARATE. [Concomitant]
     Active Substance: BISOPROLOL FUMARATE
     Dates: start: 20150515
  7. FRAXIPARINE [Concomitant]
     Active Substance: NADROPARIN CALCIUM
     Dates: start: 20151213, end: 20151223
  8. MEROPENEM. [Concomitant]
     Active Substance: MEROPENEM
     Dates: start: 20151213, end: 20151223
  9. CLOPIDOGREL [Suspect]
     Active Substance: CLOPIDOGREL BISULFATE
     Route: 065
     Dates: start: 20150313
  10. EPLERENONE. [Concomitant]
     Active Substance: EPLERENONE
     Dates: start: 20150603
  11. KANAVIT [Concomitant]
     Dates: start: 20151213, end: 20151223

REACTIONS (3)
  - Urinary bladder rupture [Unknown]
  - Cystitis [Recovered/Resolved]
  - Bladder tamponade [Recovered/Resolved]

NARRATIVE: CASE EVENT DATE: 20151102
